FAERS Safety Report 9078248 (Version 1)
Quarter: 2013Q1

REPORT INFORMATION
  Report Type: Report from Study
  Country: US (occurrence: US)
  Receive Date: 20130130
  Receipt Date: 20130130
  Transmission Date: 20140127
  Serious: No
  Sender: FDA-Public Use
  Company Number: US-ABBOTT-12P-163-0965907-00

PATIENT
  Age: 53 Year
  Sex: Female

DRUGS (9)
  1. HUMIRA 40 MG/0.8 ML PEN [Suspect]
     Indication: PSORIASIS
     Dates: start: 20120709
  2. ABILIFY [Concomitant]
     Indication: BIPOLAR DISORDER
     Dosage: 5MG DAILY
  3. CITALOPRAM [Concomitant]
     Indication: BIPOLAR DISORDER
     Dosage: 40MG DAILY
  4. OXCARBAZEPINE [Concomitant]
     Indication: AFFECTIVE DISORDER
  5. HYDROXYZINE [Concomitant]
     Indication: ANXIETY
  6. SYMBICORT [Concomitant]
     Indication: ASTHMA
  7. PROVENTIL [Concomitant]
     Indication: PRODUCT USED FOR UNKNOWN INDICATION
  8. ZOLPIDEM TARTRATE [Concomitant]
     Indication: INSOMNIA
  9. DICLOFENAC SODIUM [Concomitant]
     Indication: BURSITIS

REACTIONS (2)
  - Incorrect dose administered [Recovered/Resolved]
  - Wrong technique in drug usage process [Recovered/Resolved]
